FAERS Safety Report 7540655-6 (Version None)
Quarter: 2011Q2

REPORT INFORMATION
  Report Type: 
  Country: None (occurrence: None)
  Receive Date: 20110610
  Receipt Date: 20110608
  Transmission Date: 20111010
  Serious: Yes (Death, Other)
  Sender: FDA-Public Use
  Company Number: PHHY2011GB50425

PATIENT

DRUGS (3)
  1. TREOSULFAN [Concomitant]
     Dosage: 42 G/M2
  2. CAMPATH [Concomitant]
  3. FLUDARABINE PHOSPHATE [Suspect]
     Indication: OMENN SYNDROME

REACTIONS (3)
  - GRAFT VERSUS HOST DISEASE [None]
  - CEREBRAL INFARCTION [None]
  - CONVULSION [None]
